FAERS Safety Report 21590018 (Version 1)
Quarter: 2022Q4

REPORT INFORMATION
  Report Type: Spontaneous
  Country: CN (occurrence: CN)
  Receive Date: 20221114
  Receipt Date: 20221114
  Transmission Date: 20230112
  Serious: Yes (Other)
  Sender: FDA-Public Use
  Company Number: CN-SA-SAC20221110001609

PATIENT
  Age: 50 Year
  Sex: Female
  Weight: 62.5 kg

DRUGS (5)
  1. ZOLPIDEM TARTRATE [Suspect]
     Active Substance: ZOLPIDEM TARTRATE
     Indication: Insomnia
     Dosage: 10 MG, QD
     Route: 048
     Dates: start: 20220522, end: 20220523
  2. DEZOCINE [Concomitant]
     Active Substance: DEZOCINE
     Indication: Pain
     Dosage: 5 MG, BID
     Route: 041
     Dates: start: 20220501, end: 20220523
  3. FRUCTOSE\GLYCERIN\SODIUM CHLORIDE [Concomitant]
     Active Substance: FRUCTOSE\GLYCERIN\SODIUM CHLORIDE
     Indication: Brain abscess
     Dosage: 250 ML, QD
     Route: 041
     Dates: start: 20220520, end: 20220623
  4. GADOPENTETATE DIMEGLUMINE [Concomitant]
     Active Substance: GADOPENTETATE DIMEGLUMINE
     Indication: Magnetic resonance imaging
     Dosage: DOSE 2.000000 DOSE UNIT VIALS NUMBER OF USE 1 DAY NUMBER OF USE 1
     Route: 041
     Dates: start: 20220505, end: 20220505
  5. GADOTERATE MEGLUMINE [Concomitant]
     Active Substance: GADOTERATE MEGLUMINE
     Indication: Magnetic resonance imaging
     Dosage: DOSE 15.000000 DOSE UNIT ML NUMBER OF USE 1 DAY NUMBER OF USE 1
     Route: 041
     Dates: start: 20220523, end: 20220523

REACTIONS (1)
  - Delirium [Recovered/Resolved]

NARRATIVE: CASE EVENT DATE: 20220523
